FAERS Safety Report 25742046 (Version 1)
Quarter: 2025Q3

REPORT INFORMATION
  Report Type: Spontaneous
  Country: US (occurrence: None)
  Receive Date: 20250829
  Receipt Date: 20250829
  Transmission Date: 20251021
  Serious: Yes (Disabling)
  Sender: FDA-CTU
  Company Number: None

PATIENT
  Age: 82 Year
  Sex: Female
  Weight: 65.25 kg

DRUGS (11)
  1. KEVZARA [Suspect]
     Active Substance: SARILUMAB
     Indication: Polymyalgia rheumatica
     Route: 030
     Dates: start: 20250810, end: 20250824
  2. Levothyroxine 112 [Concomitant]
  3. ESTRADIOL TRANSDERMAL SYSTEM [Concomitant]
     Active Substance: ESTRADIOL
  4. MEDROXYPROGESTERONE [Concomitant]
     Active Substance: MEDROXYPROGESTERONE
  5. losartan (50) [Concomitant]
  6. prednisone 6 mg daily [Concomitant]
  7. BEMPEDOIC ACID [Concomitant]
     Active Substance: BEMPEDOIC ACID
  8. MINERALS\VITAMINS [Concomitant]
     Active Substance: MINERALS\VITAMINS
  9. chewable magnesium [Concomitant]
  10. BIOTENE NOS [Concomitant]
     Active Substance: UNSPECIFIED INGREDIENT
  11. Vit b-12 [Concomitant]

REACTIONS (4)
  - Musculoskeletal stiffness [None]
  - Dysstasia [None]
  - Gait disturbance [None]
  - Myalgia [None]

NARRATIVE: CASE EVENT DATE: 20250829
